FAERS Safety Report 14876082 (Version 1)
Quarter: 2018Q2

REPORT INFORMATION
  Report Type: Spontaneous
  Country: GB (occurrence: FR)
  Receive Date: 20180510
  Receipt Date: 20180510
  Transmission Date: 20180711
  Serious: Yes (Hospitalization)
  Sender: FDA-Public Use
  Company Number: FR-FRESENIUS KABI-FK201805289

PATIENT
  Sex: Female
  Weight: .6 kg

DRUGS (1)
  1. PROPOFOL (MANUFACTURER UNKNOWN) [Suspect]
     Active Substance: PROPOFOL
     Indication: ENDOTRACHEAL INTUBATION
     Route: 042
     Dates: start: 20180323, end: 20180323

REACTIONS (3)
  - Drug administered to patient of inappropriate age [Recovered/Resolved]
  - Hypotension [Recovered/Resolved]
  - Somnolence neonatal [Recovered/Resolved]

NARRATIVE: CASE EVENT DATE: 20180323
